FAERS Safety Report 9938045 (Version 2)
Quarter: 2014Q1

REPORT INFORMATION
  Report Type: Spontaneous
  Country: US (occurrence: US)
  Receive Date: 20140303
  Receipt Date: 20140303
  Transmission Date: 20141002
  Serious: Yes (Other)
  Sender: FDA-Public Use
  Company Number: US-BEH-2013034405

PATIENT
  Age: 41 Year
  Sex: Female
  Weight: 52 kg

DRUGS (15)
  1. PRIVIGEN [Suspect]
     Indication: CAPILLARY LEAK SYNDROME
     Dosage: 16 ML/HR FOR 30 MIN, 32 ML/HR FOR 15 MIN, 127 ML/HR FOR 15 MIN, MAX RATE 253 ML/HR.
     Route: 042
     Dates: start: 20121219, end: 20121219
  2. PRIVIGEN [Suspect]
     Dosage: 16 ML/HR FOR 30 MIN, 32 ML/HR FOR 15 MIN, 127 ML/HR FOR 15 MIN, MAX RATE 253 ML/HR.
     Route: 042
     Dates: start: 20121219, end: 20121219
  3. PRIVIGEN [Suspect]
     Dosage: 16 ML/HR FOR 30 MIN, 32 ML/HR FOR 15 MIN, 127 ML/HR FOR 15 MIN, MAX RATE 253 ML/HR.
     Route: 042
     Dates: start: 20121219, end: 20121219
  4. PRIVIGEN [Suspect]
     Route: 042
  5. PRIVIGEN [Suspect]
     Route: 042
  6. PRIVIGEN [Suspect]
     Route: 042
  7. THEOPHYLLINE [Concomitant]
  8. DAILY MULTIVITAMIN [Concomitant]
  9. DEXTROSE 5% [Concomitant]
     Indication: PREMEDICATION
  10. DIPHENHYDRAMINE [Concomitant]
     Indication: PREMEDICATION
  11. SODIUM CHLORIDE [Concomitant]
     Indication: PREMEDICATION
  12. EPI-PEN [Concomitant]
     Indication: PREMEDICATION
  13. L-M-X CREAM [Concomitant]
     Indication: PREMEDICATION
  14. MOTRIN [Concomitant]
  15. ZYRTEC [Concomitant]

REACTIONS (2)
  - Lower respiratory tract infection [Unknown]
  - Headache [Unknown]
